FAERS Safety Report 6655270-6 (Version None)
Quarter: 2010Q1

REPORT INFORMATION
  Report Type: 
  Country: None (occurrence: None)
  Receive Date: 20100324
  Receipt Date: 20100304
  Transmission Date: 20100710
  Serious: Yes (Death)
  Sender: FDA-Public Use
  Company Number: JP-SOLVAY-00309007977

PATIENT
  Age: 73 Year
  Sex: Female

DRUGS (6)
  1. FLUVOXAMINE MALEATE [Suspect]
     Indication: DEPRESSION
     Dosage: 100 MILLIGRAM(S); ORAL
     Route: 048
     Dates: start: 20090928, end: 20091216
  2. MIRTAZAPINE [Suspect]
     Indication: DEPRESSION
     Dosage: 7.5 MILLIGRAM(S), ORAL
     Route: 048
     Dates: start: 20091214, end: 20091216
  3. AKINETON [Suspect]
     Indication: DRUG USE FOR UNKNOWN INDICATION
     Dosage: 2 MILLIGRAM(S), ORAL
     Route: 048
     Dates: start: 20080801, end: 20091216
  4. SILECE (FLUNITRAZEPAM) [Suspect]
     Indication: INSOMNIA
     Dosage: 2 MILLIGRAM(S), ORAL
     Route: 048
     Dates: start: 20080801, end: 20091216
  5. PROMETHAZINE HCL [Suspect]
     Indication: DRUG USE FOR UNKNOWN INDICATION
     Dosage: 10 MILLIGRAM(S), ORAL
     Route: 048
     Dates: start: 20090810, end: 20091216
  6. AMOBAN (ZOPICLONE) [Suspect]
     Indication: INSOMNIA
     Dosage: 7.5 MILLIGRAM'S, ORAL
     Route: 048
     Dates: start: 20081201, end: 20091216

REACTIONS (1)
  - COMPLETED SUICIDE [None]
